FAERS Safety Report 4305486-9 (Version None)
Quarter: 2004Q1

REPORT INFORMATION
  Report Type: 
  Country: None (occurrence: None)
  Receive Date: 20040226
  Receipt Date: 20031016
  Transmission Date: 20041129
  Serious: Yes (Life-Threatening)
  Sender: FDA-Public Use
  Company Number: US-BRISTOL-MYERS SQUIBB COMPANY-12411963

PATIENT
  Age: 11 Year
  Sex: Male
  Weight: 42 kg

DRUGS (4)
  1. ABILIFY [Suspect]
     Indication: INTERMITTENT EXPLOSIVE DISORDER
     Dosage: STOPPED ON 18-JUL-2003, RESTARTED ON 20-JUL-2003
     Route: 048
     Dates: start: 20030717
  2. ABILIFY [Suspect]
     Indication: ANXIETY
     Dosage: STOPPED ON 18-JUL-2003, RESTARTED ON 20-JUL-2003
     Route: 048
     Dates: start: 20030717
  3. CHLORPROMAZINE [Concomitant]
     Indication: AGITATION
     Dosage: ORAL OR IM
  4. DIPHENHYDRAMINE HCL [Concomitant]
     Indication: AGITATION
     Dosage: 25 TO 75 MG IM OR ORAL EVERY 4 HOURS AS NECESSARY

REACTIONS (2)
  - DYSTONIA [None]
  - SWOLLEN TONGUE [None]
